FAERS Safety Report 17084681 (Version 1)
Quarter: 2019Q4

REPORT INFORMATION
  Report Type: Spontaneous
  Country: US (occurrence: US)
  Receive Date: 20191030
  Receipt Date: 20191030
  Transmission Date: 20200122
  Serious: Yes (Hospitalization)
  Sender: FDA-Public Use
  Company Number: None

PATIENT
  Age: 52 Year
  Sex: Female

DRUGS (1)
  1. CAPECITABINE 500MG TEVA [Suspect]
     Active Substance: CAPECITABINE
     Indication: BREAST CANCER FEMALE
     Route: 048
     Dates: start: 201906

REACTIONS (3)
  - Coronary artery embolism [None]
  - Hypophagia [None]
  - Weight decreased [None]

NARRATIVE: CASE EVENT DATE: 201909
